FAERS Safety Report 6841497-7 (Version None)
Quarter: 2010Q3

REPORT INFORMATION
  Report Type: 
  Country: None (occurrence: None)
  Receive Date: 20100714
  Receipt Date: 20070706
  Transmission Date: 20110219
  Serious: No
  Sender: FDA-Public Use
  Company Number: US-PFIZER INC-2007056969

PATIENT
  Age: 35 Year
  Sex: Male

DRUGS (3)
  1. CHANTIX [Suspect]
     Indication: SMOKING CESSATION THERAPY
     Route: 048
     Dates: start: 20070628
  2. DIPHENHYDRAMINE [Suspect]
     Indication: LIP SWELLING
     Dates: start: 20070101
  3. DIPHENHYDRAMINE [Suspect]
     Indication: RASH

REACTIONS (4)
  - ACNE [None]
  - DRUG INEFFECTIVE [None]
  - LIP SWELLING [None]
  - RASH [None]
